FAERS Safety Report 6153144-0 (Version None)
Quarter: 2009Q2

REPORT INFORMATION
  Report Type: 
  Country: None (occurrence: None)
  Receive Date: 20090413
  Receipt Date: 20090406
  Transmission Date: 20091009
  Serious: Yes (Death, Hospitalization)
  Sender: FDA-Public Use
  Company Number: MY-RB-013681-09

PATIENT
  Age: 49 Year
  Sex: Male

DRUGS (2)
  1. SUBUTEX [Suspect]
     Indication: DRUG USE FOR UNKNOWN INDICATION
     Dosage: UNKNOWN DOSAGE
     Route: 042
  2. DORMICUM [Suspect]
     Indication: DRUG USE FOR UNKNOWN INDICATION
     Dosage: UNKNOWN DOSAGE AND FORM
     Route: 042

REACTIONS (11)
  - ANTIMICROBIAL SUSCEPTIBILITY TEST RESISTANT [None]
  - CARDIAC FAILURE [None]
  - CARDIAC VALVE VEGETATION [None]
  - CHILLS [None]
  - ENDOCARDITIS [None]
  - INTENTIONAL DRUG MISUSE [None]
  - INTERVERTEBRAL DISCITIS [None]
  - PYREXIA [None]
  - SEPSIS [None]
  - SEPTIC SHOCK [None]
  - STAPHYLOCOCCAL SEPSIS [None]
